FAERS Safety Report 22333212 (Version 2)
Quarter: 2023Q2

REPORT INFORMATION
  Report Type: Other
  Country: AU (occurrence: AU)
  Receive Date: 20230517
  Receipt Date: 20230613
  Transmission Date: 20230722
  Serious: Yes (Hospitalization)
  Sender: FDA-Public Use
  Company Number: AU-Osmotica_Pharmaceutical_US_LLC-POI0573202300132

PATIENT
  Sex: Female

DRUGS (1)
  1. DIVIGEL [Suspect]
     Active Substance: ESTRADIOL
     Indication: Product used for unknown indication
     Dosage: 1MG BY 1G
     Route: 061
     Dates: start: 2023

REACTIONS (4)
  - Malaise [Unknown]
  - Heart rate increased [Unknown]
  - Flushing [Unknown]
  - Oestrogen deficiency [Unknown]

NARRATIVE: CASE EVENT DATE: 20230101
